FAERS Safety Report 16710423 (Version 1)
Quarter: 2019Q3

REPORT INFORMATION
  Report Type: Spontaneous
  Country: US (occurrence: US)
  Receive Date: 20190816
  Receipt Date: 20190816
  Transmission Date: 20191004
  Serious: No
  Sender: FDA-Public Use
  Company Number: US-OSMOTICA_PHARMACEUTICAL_US_LLC-POI0573201900267

PATIENT
  Age: 22 Year
  Sex: Male

DRUGS (1)
  1. METHYLPHENIDATE HYDROCHLORIDE EXTENDED-RELEASE TABLETS [Suspect]
     Active Substance: METHYLPHENIDATE HYDROCHLORIDE
     Indication: ATTENTION DEFICIT/HYPERACTIVITY DISORDER
     Dates: start: 201712, end: 201712

REACTIONS (5)
  - Dry mouth [Recovered/Resolved]
  - Hyperhidrosis [Recovered/Resolved]
  - Panic attack [Recovered/Resolved]
  - Decreased appetite [Recovered/Resolved]
  - Therapeutic product effect increased [Recovered/Resolved]

NARRATIVE: CASE EVENT DATE: 201712
